FAERS Safety Report 18042221 (Version 4)
Quarter: 2020Q4

REPORT INFORMATION
  Report Type: Report from Study
  Country: US (occurrence: US)
  Receive Date: 20200720
  Receipt Date: 20201015
  Transmission Date: 20210113
  Serious: Yes (Other)
  Sender: FDA-Public Use
  Company Number: NVSC2020US203186

PATIENT
  Age: 52 Year
  Sex: Female

DRUGS (2)
  1. GILENYA [Suspect]
     Active Substance: FINGOLIMOD HYDROCHLORIDE
     Route: 048
  2. GILENYA [Suspect]
     Active Substance: FINGOLIMOD HYDROCHLORIDE
     Indication: MULTIPLE SCLEROSIS
     Dosage: 0.5 MG, QD
     Route: 048
     Dates: start: 20200716

REACTIONS (10)
  - Pain [Unknown]
  - Photophobia [Unknown]
  - Cognitive disorder [Unknown]
  - Fatigue [Unknown]
  - Speech disorder [Unknown]
  - Insomnia [Unknown]
  - Hypoaesthesia [Unknown]
  - Sleep disorder [Unknown]
  - Anxiety [Unknown]
  - Relapsing multiple sclerosis [Unknown]

NARRATIVE: CASE EVENT DATE: 20200716
